FAERS Safety Report 24275809 (Version 1)
Quarter: 2024Q3

REPORT INFORMATION
  Report Type: Spontaneous
  Country: US (occurrence: US)
  Receive Date: 20240903
  Receipt Date: 20240903
  Transmission Date: 20241017
  Serious: Yes (Other)
  Sender: CHEPLAPHARM
  Company Number: US-CHEPLA-2024011178

PATIENT
  Sex: Female

DRUGS (6)
  1. OLANZAPINE [Suspect]
     Active Substance: OLANZAPINE
     Indication: Product used for unknown indication
  2. OLANZAPINE [Suspect]
     Active Substance: OLANZAPINE
     Indication: Product used for unknown indication
  3. ABILIFY [Suspect]
     Active Substance: ARIPIPRAZOLE
     Indication: Product used for unknown indication
  4. RISPERIDONE [Suspect]
     Active Substance: RISPERIDONE
     Indication: Product used for unknown indication
  5. CLOZAPINE [Suspect]
     Active Substance: CLOZAPINE
     Indication: Product used for unknown indication
  6. HALDOL [Suspect]
     Active Substance: HALOPERIDOL
     Indication: Product used for unknown indication

REACTIONS (7)
  - Loss of consciousness [Unknown]
  - Anaemia [Unknown]
  - Syncope [Unknown]
  - Illness [Unknown]
  - Migraine [Unknown]
  - Weight increased [Unknown]
  - Spherocytic anaemia [Unknown]
